FAERS Safety Report 9665596 (Version 1)
Quarter: 2013Q4

REPORT INFORMATION
  Report Type: Spontaneous
  Country: US (occurrence: None)
  Receive Date: 20131031
  Receipt Date: 20131031
  Transmission Date: 20140711
  Serious: Yes (Hospitalization)
  Sender: FDA-Public Use
  Company Number: None

PATIENT
  Age: 61 Year
  Sex: Male
  Weight: 100.6 kg

DRUGS (1)
  1. DOFETILIDE [Suspect]
     Indication: ATRIAL FIBRILLATION
     Dosage: OTHER
     Route: 048
     Dates: start: 20131025, end: 20131026

REACTIONS (3)
  - Electrocardiogram QT prolonged [None]
  - Ventricular tachycardia [None]
  - Tachycardia [None]
